FAERS Safety Report 16483316 (Version 2)
Quarter: 2019Q2

REPORT INFORMATION
  Report Type: Spontaneous
  Country: US (occurrence: US)
  Receive Date: 20190627
  Receipt Date: 20190627
  Transmission Date: 20190711
  Serious: No
  Sender: FDA-Public Use
  Company Number: US-BAYER-2019-117630

PATIENT
  Age: 63 Year
  Sex: Female
  Weight: 90.7 kg

DRUGS (1)
  1. ALEVE [Suspect]
     Active Substance: NAPROXEN SODIUM
     Indication: PAIN
     Dosage: 1 DF
     Route: 048
     Dates: start: 201906, end: 201906

REACTIONS (5)
  - Throat irritation [Recovered/Resolved]
  - Hypoaesthesia oral [Unknown]
  - Product physical consistency issue [None]
  - Foreign body in respiratory tract [Recovered/Resolved]
  - Regurgitation [Unknown]

NARRATIVE: CASE EVENT DATE: 201906
